FAERS Safety Report 6072083-7 (Version None)
Quarter: 2009Q1

REPORT INFORMATION
  Report Type: 
  Country: None (occurrence: None)
  Receive Date: 20090210
  Receipt Date: 20090204
  Transmission Date: 20090719
  Serious: Yes (Life-Threatening, Other)
  Sender: FDA-Public Use
  Company Number: JP-ASTRAZENECA-2008SE04177

PATIENT
  Age: 84 Year
  Sex: Female

DRUGS (4)
  1. AMIAS 32MG TABLETS [Suspect]
     Indication: BLOOD PRESSURE INCREASED
     Route: 048
     Dates: end: 20080820
  2. AMLODIPINE [Concomitant]
     Route: 048
  3. ISOSORBIDE MONONITRATE [Concomitant]
     Route: 048
  4. NICORANDIL [Concomitant]
     Route: 048

REACTIONS (2)
  - CHOLESTASIS [None]
  - JAUNDICE CHOLESTATIC [None]
